FAERS Safety Report 12205027 (Version 1)
Quarter: 2016Q1

REPORT INFORMATION
  Report Type: Spontaneous
  Country: US (occurrence: US)
  Receive Date: 20160323
  Receipt Date: 20160323
  Transmission Date: 20160526
  Serious: Yes (Hospitalization, Other)
  Sender: FDA-Public Use
  Company Number: US-BIOGEN-2016BI00206926

PATIENT
  Sex: Female

DRUGS (1)
  1. TYSABRI [Suspect]
     Active Substance: NATALIZUMAB
     Indication: MULTIPLE SCLEROSIS
     Route: 065

REACTIONS (15)
  - Brain operation [Unknown]
  - Multiple sclerosis relapse [Unknown]
  - Fear [Unknown]
  - Syncope [Unknown]
  - Fatigue [Unknown]
  - Cognitive disorder [Unknown]
  - Memory impairment [Unknown]
  - Trigeminal neuralgia [Unknown]
  - Temperature intolerance [Unknown]
  - Muscular weakness [Unknown]
  - Dehydration [Unknown]
  - Vein disorder [Unknown]
  - General physical health deterioration [Unknown]
  - Tremor [Unknown]
  - Dysstasia [Unknown]

NARRATIVE: CASE EVENT DATE: 2009
